FAERS Safety Report 11726349 (Version 1)
Quarter: 2015Q4

REPORT INFORMATION
  Report Type: Spontaneous
  Country: JP (occurrence: JP)
  Receive Date: 20151112
  Receipt Date: 20151112
  Transmission Date: 20160304
  Serious: Yes (Other)
  Sender: FDA-Public Use
  Company Number: JP-009507513-1511JPN005283

PATIENT
  Sex: Male

DRUGS (2)
  1. ESLAX [Suspect]
     Active Substance: ROCURONIUM BROMIDE
     Dosage: DAILY DOSE UNKNOWN
     Route: 042
  2. THERAPY UNSPECIFIED [Suspect]
     Active Substance: UNSPECIFIED INGREDIENT
     Dosage: DAILY DOSAGE UNKNOWN
     Route: 065

REACTIONS (1)
  - Rhabdomyolysis [Unknown]
